FAERS Safety Report 10642256 (Version 2)
Quarter: 2016Q3

REPORT INFORMATION
  Report Type: Report from Study
  Country: US (occurrence: US)
  Receive Date: 20141210
  Receipt Date: 20160721
  Transmission Date: 20161109
  Serious: Yes (Disabling, Other)
  Sender: FDA-Public Use
  Company Number: US-AMGEN-USASL2014094566

PATIENT
  Age: 51 Year
  Sex: Female
  Weight: 49.89 kg

DRUGS (2)
  1. ENBREL [Suspect]
     Active Substance: ETANERCEPT
     Indication: RHEUMATOID ARTHRITIS
     Dosage: 50 MG, QWK
     Route: 065
     Dates: start: 2013
  2. AMBEREN [Concomitant]
     Indication: GLAUCOMA
     Dosage: UNK

REACTIONS (4)
  - Foot fracture [Unknown]
  - Injection site pain [Not Recovered/Not Resolved]
  - Glaucoma [Unknown]
  - Road traffic accident [Recovered/Resolved]

NARRATIVE: CASE EVENT DATE: 2013
